FAERS Safety Report 9077377 (Version 1)
Quarter: 2013Q1

REPORT INFORMATION
  Report Type: Spontaneous
  Country: US (occurrence: US)
  Receive Date: 20130130
  Receipt Date: 20130130
  Transmission Date: 20140127
  Serious: No
  Sender: FDA-Public Use
  Company Number: US-ABBOTT-12P-163-0951733-00

PATIENT
  Age: 53 None
  Sex: Female
  Weight: 76.73 kg

DRUGS (8)
  1. HUMIRA 40 MG/0.8 ML PEN [Suspect]
     Indication: RHEUMATOID ARTHRITIS
     Route: 058
     Dates: start: 2010, end: 20120617
  2. METHOTREXATE [Concomitant]
     Indication: RHEUMATOID ARTHRITIS
     Dosage: 6 TABS ONCE A WEEK
     Route: 048
  3. CALCIUM WITH VITAMIN D [Concomitant]
     Indication: MINERAL SUPPLEMENTATION
     Route: 048
  4. CALCIUM WITH VITAMIN D [Concomitant]
     Indication: VITAMIN SUPPLEMENTATION
  5. FOLIC ACID [Concomitant]
     Indication: VITAMIN SUPPLEMENTATION
  6. VITAMIN D [Concomitant]
     Indication: VITAMIN SUPPLEMENTATION
     Route: 048
  7. CELEBREX [Concomitant]
     Indication: RHEUMATOID ARTHRITIS
  8. FLAX SEED OIL [Concomitant]
     Indication: MINERAL SUPPLEMENTATION

REACTIONS (11)
  - Skin lesion [Recovered/Resolved]
  - Rash papular [Recovered/Resolved]
  - Rash pustular [Recovered/Resolved]
  - Axillary pain [Unknown]
  - Local swelling [Unknown]
  - Rash erythematous [Unknown]
  - Lymphadenopathy [Unknown]
  - Hypersensitivity [Recovered/Resolved]
  - Arthropod bite [Recovered/Resolved]
  - Dermatitis contact [Recovered/Resolved]
  - Dermatitis herpetiformis [Recovered/Resolved]
